FAERS Safety Report 15810179 (Version 1)
Quarter: 2019Q1

REPORT INFORMATION
  Report Type: Spontaneous
  Country: US (occurrence: US)
  Receive Date: 20190111
  Receipt Date: 20190111
  Transmission Date: 20190417
  Serious: No
  Sender: FDA-Public Use
  Company Number: US-ROCHE-2144758

PATIENT
  Age: 44 Year
  Sex: Female

DRUGS (1)
  1. RITUXAN [Suspect]
     Active Substance: RITUXIMAB
     Indication: PRODUCT USED FOR UNKNOWN INDICATION
     Route: 042

REACTIONS (10)
  - Nasal congestion [Unknown]
  - Back pain [Unknown]
  - Conjunctivitis [Unknown]
  - Injection site bruising [Unknown]
  - Peripheral swelling [Unknown]
  - Muscular weakness [Unknown]
  - Pruritus [Unknown]
  - Tinnitus [Unknown]
  - Urticaria [Unknown]
  - Middle ear effusion [Unknown]
